FAERS Safety Report 13462811 (Version 2)
Quarter: 2017Q3

REPORT INFORMATION
  Report Type: Spontaneous
  Country: DE (occurrence: DE)
  Receive Date: 20170420
  Receipt Date: 20170922
  Transmission Date: 20171127
  Serious: Yes (Other)
  Sender: FDA-Public Use
  Company Number: DE-SA-2017SA064746

PATIENT
  Age: 73 Year
  Sex: Male

DRUGS (5)
  1. ENOXAPARIN SODIUM. [Suspect]
     Active Substance: ENOXAPARIN SODIUM
     Route: 065
  2. ENOXAPARIN SODIUM. [Suspect]
     Active Substance: ENOXAPARIN SODIUM
     Route: 065
  3. APIXABAN [Suspect]
     Active Substance: APIXABAN
     Indication: THROMBOSIS
     Route: 065
  4. APIXABAN [Suspect]
     Active Substance: APIXABAN
     Indication: THROMBOSIS
     Route: 065
     Dates: end: 201506
  5. APIXABAN [Suspect]
     Active Substance: APIXABAN
     Indication: THROMBOSIS
     Route: 065
     Dates: start: 201607

REACTIONS (8)
  - Peripheral coldness [Unknown]
  - Chest pain [Unknown]
  - Abdominal pain [Unknown]
  - Thrombosis [Unknown]
  - Contraindicated product administered [Unknown]
  - Pain in extremity [Unknown]
  - Heparin-induced thrombocytopenia [Unknown]
  - Peripheral artery occlusion [Unknown]

NARRATIVE: CASE EVENT DATE: 20160726
